FAERS Safety Report 8072274-X (Version None)
Quarter: 2012Q1

REPORT INFORMATION
  Report Type: 
  Country: None (occurrence: None)
  Receive Date: 20120126
  Receipt Date: 20120119
  Transmission Date: 20120608
  Serious: No
  Sender: FDA-Public Use
  Company Number: US-PFIZER INC-2012015818

PATIENT
  Age: 42 Year
  Sex: Female

DRUGS (4)
  1. REVATIO [Suspect]
     Dosage: UNK
  2. REMODULIN [Suspect]
     Indication: CARDIAC SEPTAL DEFECT
     Dosage: 118.8 UG/KG (0.0825 UG/KG, 1 IN 1 MIN)
     Route: 042
     Dates: start: 20100928
  3. AMBRISENTAN [Suspect]
     Dosage: UNK
  4. WARFARIN SODIUM [Concomitant]
     Dosage: UNK

REACTIONS (2)
  - HEADACHE [None]
  - DISTURBANCE IN ATTENTION [None]
